FAERS Safety Report 16088553 (Version 1)
Quarter: 2019Q1

REPORT INFORMATION
  Report Type: Spontaneous
  Country: US (occurrence: US)
  Receive Date: 20190319
  Receipt Date: 20190319
  Transmission Date: 20190418
  Serious: No
  Sender: FDA-Public Use
  Company Number: US-PFIZER INC-2019109933

PATIENT
  Age: 26 Year
  Sex: Female
  Weight: 88.9 kg

DRUGS (3)
  1. ADVIL LIQUI-GELS [Suspect]
     Active Substance: IBUPROFEN
     Indication: DYSMENORRHOEA
     Dosage: 400 MG, SINGLE
     Route: 048
     Dates: start: 20190308, end: 20190308
  2. VITAMIN D [ERGOCALCIFEROL] [Concomitant]
     Active Substance: ERGOCALCIFEROL
     Indication: VITAMIN D DEFICIENCY
     Dosage: 5000 UG, 1X/DAY [EVERY MORNING]
     Route: 048
  3. COLLAGEN [Concomitant]
     Active Substance: COLLAGEN
     Indication: VITAMIN SUPPLEMENTATION
     Dosage: 12000 MG, DAILY (6,000 MG TWO TABLET EVERY MORNING BY MOUTH)
     Route: 048

REACTIONS (2)
  - Pruritus generalised [Not Recovered/Not Resolved]
  - Erythema [Not Recovered/Not Resolved]

NARRATIVE: CASE EVENT DATE: 20190308
